FAERS Safety Report 4747056-4 (Version None)
Quarter: 2005Q3

REPORT INFORMATION
  Report Type: 
  Country: None (occurrence: None)
  Receive Date: 20050815
  Receipt Date: 20050728
  Transmission Date: 20060218
  Serious: Yes (Hospitalization, Other)
  Sender: FDA-Public Use
  Company Number: US_0508120503

PATIENT
  Age: 1 Day
  Sex: Male
  Weight: 4 kg

DRUGS (6)
  1. HUMALOG [Suspect]
  2. HUMULIN N [Suspect]
     Dates: end: 20050301
  3. HUMULIN L [Suspect]
  4. ASACOL [Concomitant]
  5. PRENATAL VITAMINS [Concomitant]
  6. SULFASALAZINE [Concomitant]

REACTIONS (4)
  - DRUG EXPOSURE DURING PREGNANCY [None]
  - FEEDING DISORDER NEONATAL [None]
  - PREMATURE BABY [None]
  - RESPIRATORY DISORDER NEONATAL [None]
